FAERS Safety Report 18656991 (Version 2)
Quarter: 2021Q1

REPORT INFORMATION
  Report Type: Spontaneous
  Country: BE (occurrence: BE)
  Receive Date: 20201223
  Receipt Date: 20210105
  Transmission Date: 20210419
  Serious: Yes (Other)
  Sender: FDA-Public Use
  Company Number: BE-AMERICAN REGENT INC-2020002737

PATIENT
  Age: 28 Year
  Sex: Female
  Weight: 64 kg

DRUGS (3)
  1. DAFLON                             /01026201/ [Concomitant]
     Active Substance: DIOSMIN\HESPERIDIN
     Indication: PRODUCT USED FOR UNKNOWN INDICATION
     Dosage: 4 DOSAGE FORMS (2 DOSAGE FORMS, 2 IN 1 D)
     Route: 065
  2. FERINJECT [Suspect]
     Active Substance: FERRIC CARBOXYMALTOSE
     Indication: ANAEMIA OF PREGNANCY
     Dosage: 1 GM, 1 IN 1 TOTAL
     Dates: start: 20201010, end: 20201010
  3. OMNIBIONTA                         /01015101/ [Concomitant]
     Indication: NUTRITIONAL SUPPLEMENTATION
     Dosage: 1 DOSAGE FORMS (1 DOSAGE FORMS, 1 IN 1 D)
     Route: 065

REACTIONS (2)
  - Injection site discolouration [Not Recovered/Not Resolved]
  - Skin discolouration [Not Recovered/Not Resolved]

NARRATIVE: CASE EVENT DATE: 20201010
